FAERS Safety Report 13466161 (Version 1)
Quarter: 2017Q2

REPORT INFORMATION
  Report Type: Spontaneous
  Country: US (occurrence: US)
  Receive Date: 20170420
  Receipt Date: 20170420
  Transmission Date: 20170830
  Serious: No
  Sender: FDA-Public Use
  Company Number: None

PATIENT
  Age: 54 Year
  Sex: Male

DRUGS (1)
  1. DOFETILIDE. [Suspect]
     Active Substance: DOFETILIDE
     Indication: MALAISE
     Route: 048
     Dates: start: 20160930

REACTIONS (2)
  - Nipple pain [None]
  - Skin irritation [None]

NARRATIVE: CASE EVENT DATE: 20170122
